FAERS Safety Report 5101336-1 (Version None)
Quarter: 2006Q3

REPORT INFORMATION
  Report Type: 
  Country: None (occurrence: None)
  Receive Date: 20060911
  Receipt Date: 20060803
  Transmission Date: 20061208
  Serious: Yes (Hospitalization)
  Sender: FDA-Public Use
  Company Number: FR-NOVOPROD-255957

PATIENT
  Age: 52 Year
  Sex: Female

DRUGS (3)
  1. NOVORAPID [Suspect]
     Indication: DIABETES MELLITUS INSULIN-DEPENDENT
     Dates: start: 19920701, end: 20060701
  2. LANTUS [Suspect]
     Indication: DIABETES MELLITUS INSULIN-DEPENDENT
     Route: 058
  3. CRESTOR                            /01588601/ [Concomitant]
     Route: 048
     Dates: end: 20060701

REACTIONS (3)
  - FACIAL PALSY [None]
  - HEADACHE [None]
  - HYPOGLYCAEMIA [None]
